FAERS Safety Report 7758862-6 (Version None)
Quarter: 2011Q3

REPORT INFORMATION
  Report Type: 
  Country: None (occurrence: None)
  Receive Date: 20110915
  Receipt Date: 20110902
  Transmission Date: 20111222
  Serious: Yes (Other)
  Sender: FDA-Public Use
  Company Number: TRP_07675_2011

PATIENT
  Age: 1 Day
  Sex: Male

DRUGS (4)
  1. PEGASYS [Suspect]
     Indication: PRODUCT USED FOR UNKNOWN INDICATION
     Dosage: 1 IN 1 WK, INTRAMUSCULAR
     Route: 030
     Dates: start: 20090612, end: 20100507
  2. ZYRTEC [Concomitant]
  3. PRILOSEC [Concomitant]
  4. RIBAVIRIN [Suspect]
     Indication: PRODUCT USED FOR UNKNOWN INDICATION
     Dosage: DF
     Dates: start: 20090612, end: 20100514

REACTIONS (5)
  - CAESAREAN SECTION [None]
  - MATERNAL DRUGS AFFECTING FOETUS [None]
  - JAUNDICE NEONATAL [None]
  - UMBILICAL CORD VASCULAR DISORDER [None]
  - HAEMOGLOBIN DECREASED [None]
